FAERS Safety Report 7455254-4 (Version None)
Quarter: 2011Q2

REPORT INFORMATION
  Report Type: 
  Country: None (occurrence: None)
  Receive Date: 20110503
  Receipt Date: 20110420
  Transmission Date: 20111010
  Serious: Yes (Hospitalization)
  Sender: FDA-Public Use
  Company Number: US-ELI_LILLY_AND_COMPANY-US201104006470

PATIENT
  Sex: Female

DRUGS (14)
  1. PERCOCET [Concomitant]
     Indication: PAIN
     Dosage: 10 MG, UNK
  2. OXYGEN [Concomitant]
     Dosage: UNK, EACH EVENING
  3. DOXYCYCLINE [Concomitant]
     Dosage: 100 MG, UNK
  4. NEXIUM [Concomitant]
     Dosage: 40 MG, UNK
  5. PREDNISONE [Concomitant]
     Dosage: 20 MG, UNK
  6. ASPIRIN [Concomitant]
     Dosage: 325 MG, QD
  7. XANAX [Concomitant]
     Dosage: 1 MG, UNK
  8. CAPTOPRIL [Concomitant]
     Dosage: 1 DF, UNK
  9. ANTIBIOTICS [Concomitant]
  10. FORTEO [Suspect]
     Indication: OSTEOPOROSIS
     Dosage: 20 UG, QD
     Dates: start: 20110412
  11. SPIRIVA [Concomitant]
     Dosage: 18 UG, UNK
  12. XOPENEX [Concomitant]
  13. SENOKOT [Concomitant]
     Indication: CONSTIPATION
  14. LABETALOL [Concomitant]
     Dosage: 200 MG, UNK

REACTIONS (7)
  - OXYGEN CONSUMPTION DECREASED [None]
  - MUSCLE SPASMS [None]
  - BLOOD GLUCOSE INCREASED [None]
  - HEART RATE IRREGULAR [None]
  - DYSPNOEA [None]
  - PYREXIA [None]
  - BONE PAIN [None]
